FAERS Safety Report 13159422 (Version 2)
Quarter: 2017Q1

REPORT INFORMATION
  Report Type: Spontaneous
  Country: US (occurrence: US)
  Receive Date: 20170127
  Receipt Date: 20170202
  Transmission Date: 20170428
  Serious: Yes (Other)
  Sender: FDA-Public Use
  Company Number: US-CELGENEUS-USA-2017018030

PATIENT
  Age: 42 Year
  Sex: Male
  Weight: 113.5 kg

DRUGS (2)
  1. STELARA [Concomitant]
     Active Substance: USTEKINUMAB
     Indication: PSORIASIS
     Dosage: 90 MILLIGRAM/MILLILITERS
     Route: 065
     Dates: start: 20150414
  2. OTEZLA [Suspect]
     Active Substance: APREMILAST
     Indication: PSORIASIS
     Dosage: 60 MILLIGRAM
     Route: 048
     Dates: start: 20150701, end: 20161219

REACTIONS (2)
  - Drug ineffective [Unknown]
  - Back disorder [Unknown]

NARRATIVE: CASE EVENT DATE: 201612
